FAERS Safety Report 7108444-4 (Version None)
Quarter: 2010Q4

REPORT INFORMATION
  Report Type: 
  Country: None (occurrence: None)
  Receive Date: 20101115
  Receipt Date: 20101115
  Transmission Date: 20110411
  Serious: No
  Sender: FDA-Public Use
  Company Number: None

PATIENT
  Sex: Female
  Weight: 74.8435 kg

DRUGS (2)
  1. TERCONAZOLE [Suspect]
     Indication: PRURITUS
     Dosage: 1 APPLICATOR FILL THREE DAYS
     Dates: start: 20101021
  2. TERCONAZOLE [Suspect]
     Indication: PRURITUS
     Dosage: 1 APPLICATOR FILL THREE DAYS
     Dates: start: 20101022

REACTIONS (3)
  - DIZZINESS [None]
  - HAEMORRHAGE [None]
  - MUSCLE SPASMS [None]
